FAERS Safety Report 12458790 (Version 2)
Quarter: 2016Q2

REPORT INFORMATION
  Report Type: Spontaneous
  Country: BR (occurrence: BR)
  Receive Date: 20160613
  Receipt Date: 20160627
  Transmission Date: 20160815
  Serious: Yes (Hospitalization, Other)
  Sender: FDA-Public Use
  Company Number: BR-PFIZER INC-2016292279

PATIENT
  Age: 7 Decade
  Sex: Female
  Weight: 94 kg

DRUGS (12)
  1. LABIRIN [Concomitant]
     Active Substance: BETAHISTINE
     Dosage: 24 MG, UNK
  2. MECLIN [Concomitant]
     Dosage: UNK
  3. ACICLOVIR [Concomitant]
     Active Substance: ACYCLOVIR
     Dosage: 200 MG, UNK
  4. AAS [Concomitant]
     Active Substance: ASPIRIN
     Dosage: UNK
     Dates: start: 2014, end: 2015
  5. BENICAR HCT [Suspect]
     Active Substance: HYDROCHLOROTHIAZIDE\OLMESARTAN MEDOXOMIL
     Indication: HYPERTENSION
     Dosage: 40/12.5, QD
     Route: 065
     Dates: start: 2011
  6. VASTAREL [Suspect]
     Active Substance: TRIMETAZIDINE DIHYDROCHLORIDE
     Indication: MYOCARDIAL NECROSIS MARKER INCREASED
     Dosage: 35 MG, 2X/DAY
     Route: 065
     Dates: start: 2015
  7. LIPITOR [Concomitant]
     Active Substance: ATORVASTATIN CALCIUM
     Dosage: UNK
  8. ALDACTONE [Suspect]
     Active Substance: SPIRONOLACTONE
     Indication: MYOCARDIAL NECROSIS MARKER INCREASED
     Dosage: 25 MG, QD
     Route: 065
     Dates: start: 2015
  9. BENICAR HCT [Suspect]
     Active Substance: HYDROCHLOROTHIAZIDE\OLMESARTAN MEDOXOMIL
     Dosage: 40/25, QD
     Route: 065
     Dates: end: 20160530
  10. MANIVASC [Concomitant]
     Active Substance: MANIDIPINE HYDROCHLORIDE
     Dosage: UNK
     Dates: start: 2015
  11. SOMALGIN [Suspect]
     Active Substance: ASPIRIN\DIHYDROXYALUMINUM AMINOACETATE ANHYDROUS\MAGNESIUM CARBONATE
     Dosage: 81 MG, QD
     Route: 065
     Dates: start: 2015
  12. RIVOTRIL [Concomitant]
     Active Substance: CLONAZEPAM
     Dosage: 0.5 MG, UNK

REACTIONS (9)
  - Dermatophytosis of nail [Recovered/Resolved]
  - Osteoarthritis [Recovered/Resolved with Sequelae]
  - Haematoma [Recovered/Resolved]
  - Nail disorder [Recovered/Resolved]
  - Memory impairment [Not Recovered/Not Resolved]
  - Hypertension [Recovered/Resolved]
  - Myocardial necrosis marker increased [Recovered/Resolved]
  - Malaise [Unknown]
  - Intentional product misuse [Not Recovered/Not Resolved]

NARRATIVE: CASE EVENT DATE: 2012
